FAERS Safety Report 12143154 (Version 1)
Quarter: 2016Q1

REPORT INFORMATION
  Report Type: Spontaneous
  Country: JP (occurrence: JP)
  Receive Date: 20160304
  Receipt Date: 20160304
  Transmission Date: 20160526
  Serious: Yes (Other)
  Sender: FDA-Public Use
  Company Number: PHHY2016JP026562

PATIENT
  Age: 93 Year
  Sex: Female

DRUGS (1)
  1. QUETIAPINE [Suspect]
     Active Substance: QUETIAPINE
     Indication: DELIRIUM
     Dosage: 62.5 MG, QD
     Route: 065

REACTIONS (2)
  - Hypotension [Recovered/Resolved]
  - Off label use [Unknown]
